FAERS Safety Report 4976448-3 (Version None)
Quarter: 2006Q2

REPORT INFORMATION
  Report Type: 
  Country: None (occurrence: None)
  Receive Date: 20060412
  Receipt Date: 20060403
  Transmission Date: 20061013
  Serious: Yes (Death)
  Sender: FDA-Public Use
  Company Number: HQWYE156327DEC05

PATIENT
  Age: 31 Year
  Sex: Male

DRUGS (9)
  1. MYLOTARG [Suspect]
     Indication: ACUTE MYELOID LEUKAEMIA
     Dosage: A SINGLE 15 MG DOSE (9 MG/M^2)
     Route: 041
     Dates: start: 20051130, end: 20051130
  2. CYTARABINE [Suspect]
     Indication: ACUTE MYELOID LEUKAEMIA
     Dosage: HIGH-DOSE
     Route: 042
     Dates: start: 20051122, end: 20051127
  3. ETOPOSIDE [Concomitant]
  4. OMEPRAZOLE [Concomitant]
  5. DIFLUCAN [Concomitant]
  6. CLOSTRIDIUM BUTYRICUM [Concomitant]
  7. MINOPEN (MINOCYCLINE HYDROCHLORIDE) [Concomitant]
  8. HABEKACIN (ARBEKACIN) [Concomitant]
  9. NEUPOGEN [Concomitant]

REACTIONS (9)
  - ACUTE MYELOID LEUKAEMIA [None]
  - BLOOD POTASSIUM DECREASED [None]
  - BLOOD SODIUM DECREASED [None]
  - CONDITION AGGRAVATED [None]
  - DRUG INEFFECTIVE [None]
  - INFUSION RELATED REACTION [None]
  - LEUKAEMIA RECURRENT [None]
  - MALIGNANT NEOPLASM PROGRESSION [None]
  - STAPHYLOCOCCAL SEPSIS [None]
